FAERS Safety Report 10470166 (Version 1)
Quarter: 2014Q3

REPORT INFORMATION
  Report Type: Spontaneous
  Country: US (occurrence: None)
  Receive Date: 20140909
  Receipt Date: 20140909
  Transmission Date: 20150326
  Serious: Yes (Other)
  Sender: FDA-Public Use
  Company Number: 1251313

PATIENT
  Age: 83 Year

DRUGS (2)
  1. LUCENTIS [Suspect]
     Active Substance: RANIBIZUMAB
     Indication: ENDOPHTHALMITIS
     Dosage: PER INJECTION
     Dates: start: 20070706, end: 20130711
  2. LUCENTIS [Suspect]
     Active Substance: RANIBIZUMAB
     Indication: OFF LABEL USE
     Dosage: PER INJECTION
     Dates: start: 20070706, end: 20130711

REACTIONS (1)
  - Non-infectious endophthalmitis [None]

NARRATIVE: CASE EVENT DATE: 20130716
